FAERS Safety Report 4825835-2 (Version None)
Quarter: 2005Q4

REPORT INFORMATION
  Report Type: 
  Country: None (occurrence: None)
  Receive Date: 20051111
  Receipt Date: 20051101
  Transmission Date: 20060501
  Serious: Yes (Other)
  Sender: FDA-Public Use
  Company Number: US-JNJFOC-20050602768

PATIENT
  Sex: Female
  Weight: 67.13 kg

DRUGS (52)
  1. REMICADE [Suspect]
     Route: 042
  2. REMICADE [Suspect]
     Route: 042
  3. REMICADE [Suspect]
     Route: 042
  4. REMICADE [Suspect]
     Route: 042
  5. REMICADE [Suspect]
     Route: 042
  6. REMICADE [Suspect]
     Route: 042
  7. REMICADE [Suspect]
     Route: 042
  8. REMICADE [Suspect]
     Route: 042
  9. REMICADE [Suspect]
     Route: 042
  10. REMICADE [Suspect]
     Indication: RHEUMATOID ARTHRITIS
     Route: 042
  11. METHOTREXATE [Suspect]
  12. METHOTREXATE [Suspect]
  13. METHOTREXATE [Suspect]
  14. METHOTREXATE [Suspect]
  15. METHOTREXATE [Suspect]
  16. METHOTREXATE [Suspect]
     Indication: RHEUMATOID ARTHRITIS
  17. IMURAN [Concomitant]
  18. IMURAN [Concomitant]
  19. PERCOGESIC [Concomitant]
  20. PERCOGESIC [Concomitant]
     Dosage: 325-30 MG
  21. VITAMIN E [Concomitant]
  22. VITAMIN B 125 COMPLEX [Concomitant]
  23. VITAMIN B 125 COMPLEX [Concomitant]
  24. VITAMIN B 125 COMPLEX [Concomitant]
  25. VITAMIN B 125 COMPLEX [Concomitant]
  26. VITAMIN B 125 COMPLEX [Concomitant]
  27. FISH OIL [Concomitant]
  28. CALCIUM/MAGNESIUM [Concomitant]
  29. CALCIUM/MAGNESIUM [Concomitant]
     Dosage: 250/125M
  30. SYNTHROID [Concomitant]
  31. MULTI-VITAMIN [Concomitant]
  32. MULTI-VITAMIN [Concomitant]
  33. MULTI-VITAMIN [Concomitant]
  34. MULTI-VITAMIN [Concomitant]
  35. MULTI-VITAMIN [Concomitant]
  36. MULTI-VITAMIN [Concomitant]
  37. MULTI-VITAMIN [Concomitant]
  38. MULTI-VITAMIN [Concomitant]
  39. FOLIC ACID [Concomitant]
  40. FOLIC ACID [Concomitant]
  41. CELEBREX [Concomitant]
     Dosage: UP TO TWICE A DAY
  42. BORAGE [Concomitant]
  43. OCUGAURD [Concomitant]
  44. PNEUMOVAX 23 [Concomitant]
     Route: 030
  45. KENALOG [Concomitant]
     Route: 030
  46. CELESTONE TAB [Concomitant]
     Route: 030
  47. BUFFERED BAYER ASPIRIN [Concomitant]
  48. SOY-LECTHIN [Concomitant]
  49. GARLIC [Concomitant]
  50. ASCORBIC ACID [Concomitant]
  51. FLAXSEED OIL [Concomitant]
     Dosage: 1 TBSP
  52. TUMS [Concomitant]

REACTIONS (10)
  - CANDIDIASIS [None]
  - CHEST PAIN [None]
  - DECREASED APPETITE [None]
  - DRUG INEFFECTIVE [None]
  - FURUNCLE [None]
  - HERPES SIMPLEX [None]
  - MUSCLE SPASMS [None]
  - NAUSEA [None]
  - PRODUCTIVE COUGH [None]
  - VOMITING [None]
